FAERS Safety Report 7134949-6 (Version None)
Quarter: 2010Q4

REPORT INFORMATION
  Report Type: 
  Country: None (occurrence: None)
  Receive Date: 20101203
  Receipt Date: 20101119
  Transmission Date: 20110411
  Serious: Yes (Hospitalization)
  Sender: FDA-Public Use
  Company Number: US-ELI_LILLY_AND_COMPANY-US201010006806

PATIENT
  Age: 83 Year
  Sex: Male

DRUGS (4)
  1. FORTEO [Suspect]
     Dosage: 20 UG, DAILY (1/D)
     Dates: start: 20100911
  2. HYDROCORT [Concomitant]
  3. UROXATRAL [Concomitant]
  4. LIPITOR [Concomitant]

REACTIONS (2)
  - AORTIC STENOSIS [None]
  - POST PROCEDURAL COMPLICATION [None]
